FAERS Safety Report 4595090-X (Version None)
Quarter: 2005Q1

REPORT INFORMATION
  Report Type: 
  Country: None (occurrence: None)
  Receive Date: 20050301
  Receipt Date: 20050222
  Transmission Date: 20050727
  Serious: Yes (Life-Threatening, Hospitalization, Disabling)
  Sender: FDA-Public Use
  Company Number: US-MERCK-0502USA02748

PATIENT
  Age: 51 Year
  Sex: Male

DRUGS (4)
  1. VIOXX [Suspect]
     Indication: ARTHRITIS
     Route: 048
     Dates: start: 20010101, end: 20040901
  2. CELEBREX [Concomitant]
     Route: 065
  3. [THERAPY UNSPECIFIED] [Concomitant]
     Indication: HYPERTENSION
     Route: 065
  4. LIPITOR [Concomitant]
     Route: 065

REACTIONS (7)
  - CHEST DISCOMFORT [None]
  - DYSPNOEA EXERTIONAL [None]
  - FEELING HOT AND COLD [None]
  - MASS [None]
  - MYOCARDIAL INFARCTION [None]
  - OVERDOSE [None]
  - RASH [None]
